FAERS Safety Report 5524155-0 (Version None)
Quarter: 2007Q4

REPORT INFORMATION
  Report Type: 
  Country: None (occurrence: None)
  Receive Date: 20071121
  Receipt Date: 20071109
  Transmission Date: 20080405
  Serious: Yes (Other)
  Sender: FDA-Public Use
  Company Number: US-PFIZER INC-2007095413

PATIENT
  Sex: Female

DRUGS (8)
  1. NEURONTIN [Suspect]
     Indication: NERVE INJURY
     Route: 048
  2. GABAPENTIN [Suspect]
     Indication: NERVE INJURY
     Route: 048
  3. CORTICOSTEROID NOS [Suspect]
  4. IBUPROFEN TABLETS [Concomitant]
     Indication: FIBROMYALGIA
  5. TRIAMTERENE [Concomitant]
  6. TRIAZOLAM [Concomitant]
     Indication: SLEEP DISORDER
  7. OXYCONTIN [Concomitant]
  8. ATENOLOL [Concomitant]

REACTIONS (7)
  - ADVERSE DRUG REACTION [None]
  - HYPERSOMNIA [None]
  - HYPOTENSION [None]
  - OEDEMA PERIPHERAL [None]
  - PRURITUS [None]
  - SPEECH DISORDER [None]
  - THROAT TIGHTNESS [None]
